FAERS Safety Report 21457990 (Version 1)
Quarter: 2022Q4

REPORT INFORMATION
  Report Type: Spontaneous
  Country: JP (occurrence: JP)
  Receive Date: 20221014
  Receipt Date: 20221014
  Transmission Date: 20230113
  Serious: Yes (Other)
  Sender: FDA-Public Use
  Company Number: JP-DSJP-DSJ-2022-136802

PATIENT
  Age: 64 Year
  Sex: Female

DRUGS (1)
  1. EDOXABAN TOSYLATE [Suspect]
     Active Substance: EDOXABAN TOSYLATE
     Indication: Pelvic venous thrombosis
     Dosage: 30MG/DAY
     Route: 065

REACTIONS (1)
  - Squamous cell carcinoma of the cervix [Unknown]
